FAERS Safety Report 19738992 (Version 3)
Quarter: 2025Q2

REPORT INFORMATION
  Report Type: Report from Study
  Country: US (occurrence: US)
  Receive Date: 20210824
  Receipt Date: 20250516
  Transmission Date: 20250717
  Serious: Yes (Other)
  Sender: TAKEDA
  Company Number: US-ARIAD-2017US008201

PATIENT
  Sex: Male

DRUGS (16)
  1. PONATINIB [Suspect]
     Active Substance: PONATINIB
     Indication: Philadelphia positive acute lymphocytic leukaemia
     Dosage: 15 MILLIGRAM, QD
     Dates: start: 2015
  2. PONATINIB [Suspect]
     Active Substance: PONATINIB
     Indication: Acute lymphocytic leukaemia
     Dosage: 30 MILLIGRAM, QD
     Dates: start: 20170315
  3. PONATINIB [Suspect]
     Active Substance: PONATINIB
     Dosage: 45 MILLIGRAM, QD
  4. PONATINIB [Suspect]
     Active Substance: PONATINIB
     Dosage: 45 MILLIGRAM, QD
  5. VINCRISTINE [Suspect]
     Active Substance: VINCRISTINE
     Indication: Philadelphia positive acute lymphocytic leukaemia
     Dosage: UNK UNK, MONTHLY
  6. LOSARTAN POTASSIUM AND HYDROCHLOROTHIAZIDE [Concomitant]
     Active Substance: HYDROCHLOROTHIAZIDE\LOSARTAN POTASSIUM
  7. AMLODIPINE BESYLATE [Concomitant]
     Active Substance: AMLODIPINE BESYLATE
  8. CARVEDILOL [Concomitant]
     Active Substance: CARVEDILOL
  9. SIMVASTATIN [Concomitant]
     Active Substance: SIMVASTATIN
  10. DOXAZOSIN MESYLATE [Concomitant]
     Active Substance: DOXAZOSIN MESYLATE
  11. CLARITIN [Concomitant]
     Active Substance: LORATADINE
  12. VITAMIN D3 [Concomitant]
     Active Substance: CHOLECALCIFEROL
  13. GABAPENTIN [Concomitant]
     Active Substance: GABAPENTIN
  14. OCTREOTIDE [Concomitant]
     Active Substance: OCTREOTIDE
  15. Neumantine [Concomitant]
     Indication: Metastases to central nervous system
  16. Neumantine [Concomitant]
     Indication: Dementia

REACTIONS (11)
  - Acute lymphocytic leukaemia recurrent [Unknown]
  - Metastases to central nervous system [Unknown]
  - Metastases to spine [Unknown]
  - Product use issue [Unknown]
  - Hordeolum [Unknown]
  - Blood pressure increased [Unknown]
  - Rash [Unknown]
  - Pruritus [Unknown]
  - Dry skin [Unknown]
  - Fatigue [Unknown]
  - Abdominal pain upper [Recovered/Resolved]
